FAERS Safety Report 13470229 (Version 1)
Quarter: 2017Q2

REPORT INFORMATION
  Report Type: Spontaneous
  Country: US (occurrence: US)
  Receive Date: 20170421
  Receipt Date: 20170421
  Transmission Date: 20170830
  Serious: No
  Sender: FDA-Public Use
  Company Number: None

PATIENT
  Age: 55 Year
  Sex: Male

DRUGS (1)
  1. ALECENSA [Suspect]
     Active Substance: ALECTINIB HYDROCHLORIDE
     Indication: LUNG NEOPLASM MALIGNANT
     Route: 048
     Dates: start: 20170203

REACTIONS (6)
  - Joint swelling [None]
  - Vision blurred [None]
  - Genital hypoaesthesia [None]
  - Pain [None]
  - Dizziness [None]
  - Decreased appetite [None]

NARRATIVE: CASE EVENT DATE: 20170403
